FAERS Safety Report 16343415 (Version 1)
Quarter: 2019Q2

REPORT INFORMATION
  Report Type: Spontaneous
  Country: CA (occurrence: CA)
  Receive Date: 20190522
  Receipt Date: 20190522
  Transmission Date: 20190711
  Serious: Yes (Death, Other)
  Sender: FDA-Public Use
  Company Number: CA-PFIZER INC-2016106511

PATIENT
  Age: 65 Year
  Sex: Female

DRUGS (1)
  1. XELJANZ [Suspect]
     Active Substance: TOFACITINIB CITRATE
     Indication: RHEUMATOID ARTHRITIS
     Dosage: 5 MG, 2X/DAY
     Route: 048
     Dates: start: 20160118

REACTIONS (6)
  - Arthralgia [Recovered/Resolved]
  - Ligament sprain [Recovering/Resolving]
  - Joint stiffness [Recovered/Resolved]
  - Sensitivity to weather change [Not Recovered/Not Resolved]
  - Death [Fatal]
  - Groin pain [Recovering/Resolving]

NARRATIVE: CASE EVENT DATE: 201605
